FAERS Safety Report 5006439-8 (Version None)
Quarter: 2006Q2

REPORT INFORMATION
  Report Type: 
  Country: None (occurrence: None)
  Receive Date: 20060519
  Receipt Date: 20060509
  Transmission Date: 20061013
  Serious: Yes (Other)
  Sender: FDA-Public Use
  Company Number: US-JNJFOC-20060404448

PATIENT
  Sex: Male
  Weight: 78.02 kg

DRUGS (11)
  1. REMICADE [Suspect]
     Indication: RHEUMATOID ARTHRITIS
     Route: 042
  2. REMICADE [Suspect]
     Indication: CROHN'S DISEASE
     Route: 042
  3. PREDNISONE TAB [Concomitant]
  4. ASACOL [Concomitant]
  5. IMURAN [Concomitant]
  6. ACTONEL [Concomitant]
     Indication: OSTEOPOROSIS
  7. ENTOCORT [Concomitant]
  8. CELEBREX [Concomitant]
  9. FLEXERIL [Concomitant]
  10. BENTYL [Concomitant]
  11. OXYCONTIN [Concomitant]

REACTIONS (1)
  - RETINAL VEIN THROMBOSIS [None]
